FAERS Safety Report 16366742 (Version 1)
Quarter: 2019Q2

REPORT INFORMATION
  Report Type: Spontaneous
  Country: RU (occurrence: RU)
  Receive Date: 20190529
  Receipt Date: 20190529
  Transmission Date: 20190711
  Serious: Yes (Death, Other)
  Sender: FDA-Public Use
  Company Number: RU-ABBVIE-19P-251-2799114-00

PATIENT
  Age: 36 Year
  Sex: Female

DRUGS (7)
  1. CYTARABINE. [Concomitant]
     Active Substance: CYTARABINE
     Dosage: DAYS 1-14
     Dates: start: 201806, end: 20190211
  2. CYTARABINE. [Concomitant]
     Active Substance: CYTARABINE
     Indication: ACUTE MYELOID LEUKAEMIA
     Dosage: DAYS 1-21
     Dates: start: 201804, end: 201806
  3. VENETOCLAX. [Suspect]
     Active Substance: VENETOCLAX
     Indication: ACUTE MYELOID LEUKAEMIA
     Route: 065
     Dates: start: 201804, end: 201806
  4. VENETOCLAX. [Suspect]
     Active Substance: VENETOCLAX
     Route: 065
     Dates: start: 201809, end: 201810
  5. VENETOCLAX. [Suspect]
     Active Substance: VENETOCLAX
     Route: 065
     Dates: start: 201806, end: 201809
  6. VORICONAZOLE. [Concomitant]
     Active Substance: VORICONAZOLE
     Indication: ACUTE MYELOID LEUKAEMIA
     Dates: start: 2018, end: 20190211
  7. GLASDEGIB [Concomitant]
     Active Substance: GLASDEGIB
     Indication: ACUTE MYELOID LEUKAEMIA
     Dates: start: 20181102, end: 20190211

REACTIONS (10)
  - Pneumonia [Unknown]
  - Acute respiratory failure [Unknown]
  - Bronchopulmonary aspergillosis [Unknown]
  - Death [Fatal]
  - Acute myeloid leukaemia [Unknown]
  - Escherichia sepsis [Unknown]
  - Graft versus host disease [Unknown]
  - Bacterial sepsis [Unknown]
  - Cytopenia [Unknown]
  - Off label use [Unknown]

NARRATIVE: CASE EVENT DATE: 2018
